FAERS Safety Report 8812772 (Version 2)
Quarter: 2015Q2

REPORT INFORMATION
  Report Type: Report from Study
  Country: US (occurrence: US)
  Receive Date: 20120927
  Receipt Date: 20150408
  Transmission Date: 20150821
  Serious: Yes (Death)
  Sender: FDA-Public Use
  Company Number: US-ROCHE-1129630

PATIENT
  Sex: Female

DRUGS (13)
  1. FLUOROURACIL. [Concomitant]
     Active Substance: FLUOROURACIL
  2. HERCEPTIN [Suspect]
     Active Substance: TRASTUZUMAB
     Indication: GASTRIC CANCER
     Route: 042
  3. ZOFRAN [Concomitant]
     Active Substance: ONDANSETRON HYDROCHLORIDE
  4. CISPLATIN. [Concomitant]
     Active Substance: CISPLATIN
     Route: 042
  5. MANNITOL. [Concomitant]
     Active Substance: MANNITOL
     Route: 065
  6. SODIUM BICARBONATE. [Concomitant]
     Active Substance: SODIUM BICARBONATE
     Route: 042
  7. PANCREASE (UNITED STATES) [Concomitant]
  8. HERCEPTIN [Suspect]
     Active Substance: TRASTUZUMAB
     Route: 042
  9. APREPITANT. [Concomitant]
     Active Substance: APREPITANT
     Route: 048
  10. ACTIVASE [Concomitant]
     Active Substance: ALTEPLASE
     Route: 042
  11. XELODA [Concomitant]
     Active Substance: CAPECITABINE
     Dosage: 1 TABLET IN EVERY 12 HOURS
     Route: 048
  12. XELODA [Concomitant]
     Active Substance: CAPECITABINE
     Dosage: 6 TABLETS EVERY 12 HOURS
     Route: 048
  13. DECADRON [Concomitant]
     Active Substance: DEXAMETHASONE

REACTIONS (3)
  - Death [Fatal]
  - Fatigue [Unknown]
  - Dry skin [Unknown]
